FAERS Safety Report 7281409-8 (Version None)
Quarter: 2011Q1

REPORT INFORMATION
  Report Type: 
  Country: None (occurrence: None)
  Receive Date: 20110208
  Receipt Date: 20110127
  Transmission Date: 20110831
  Serious: Yes (Death, Other)
  Sender: FDA-Public Use
  Company Number: US-ELI_LILLY_AND_COMPANY-US201102000034

PATIENT
  Age: 50 Year
  Sex: Female

DRUGS (1)
  1. ALIMTA [Suspect]
     Dosage: 500 MG/M2, UNK
     Route: 042
     Dates: start: 20090101, end: 20090101

REACTIONS (4)
  - DEATH [None]
  - LIP SWELLING [None]
  - NEOPLASM MALIGNANT [None]
  - PRURITUS [None]
